FAERS Safety Report 25365654 (Version 2)
Quarter: 2025Q2

REPORT INFORMATION
  Report Type: Report from Study
  Country: JP (occurrence: JP)
  Receive Date: 20250527
  Receipt Date: 20250609
  Transmission Date: 20250716
  Serious: Yes (Other)
  Sender: SANOFI AVENTIS
  Company Number: JP-SA-2025SA144004

PATIENT
  Age: 82 Year

DRUGS (3)
  1. ENOXAPARIN SODIUM [Suspect]
     Active Substance: ENOXAPARIN SODIUM
     Indication: Thrombosis prophylaxis
     Dosage: 2000 IU, QD
     Route: 058
     Dates: start: 20170419, end: 20170502
  2. LEVOTHYROXINE SODIUM [Concomitant]
     Active Substance: LEVOTHYROXINE SODIUM
     Indication: Product used for unknown indication
     Dosage: 25 UG, QD (AFTER BREAKFAST)
     Route: 048
  3. SENNOSIDES A AND B [Concomitant]
     Active Substance: SENNOSIDES A AND B
     Indication: Product used for unknown indication
     Route: 065
     Dates: start: 20170421

REACTIONS (2)
  - Large intestine erosion [Unknown]
  - Haematochezia [Unknown]

NARRATIVE: CASE EVENT DATE: 20170426
